FAERS Safety Report 25528171 (Version 1)
Quarter: 2025Q3

REPORT INFORMATION
  Report Type: Spontaneous
  Country: EU (occurrence: EU)
  Receive Date: 20250708
  Receipt Date: 20250708
  Transmission Date: 20251021
  Serious: Yes (Hospitalization)
  Sender: RANBAXY
  Company Number: EU-MINISAL02-1030986

PATIENT
  Age: 67 Year
  Sex: Male
  Weight: 51 kg

DRUGS (6)
  1. PANTOPRAZOLE SODIUM [Suspect]
     Active Substance: PANTOPRAZOLE SODIUM
     Indication: Gastritis
     Dosage: 40 MILLIGRAM, DAILY
     Route: 040
     Dates: start: 20241021, end: 20241028
  2. ASPIRIN [Concomitant]
     Active Substance: ASPIRIN
     Indication: Infarction
     Route: 048
     Dates: start: 20240929
  3. BISOPROLOL [Concomitant]
     Active Substance: BISOPROLOL
     Indication: Product used for unknown indication
     Dosage: 2.5 MILLIGRAM, DAILY
     Route: 065
     Dates: start: 20240928
  4. FUROSEMIDE [Concomitant]
     Active Substance: FUROSEMIDE
     Indication: Infarction
     Dosage: 25 MILLIGRAM, DAILY
     Route: 048
     Dates: start: 20240928
  5. RAMIPRIL [Concomitant]
     Active Substance: RAMIPRIL
     Indication: Infarction
     Dosage: 2.5 MILLIGRAM, DAILY
     Route: 048
     Dates: start: 20240928
  6. CLOPIDOGREL [Concomitant]
     Active Substance: CLOPIDOGREL BISULFATE
     Indication: Product used for unknown indication
     Route: 065

REACTIONS (1)
  - Acute kidney injury [Not Recovered/Not Resolved]

NARRATIVE: CASE EVENT DATE: 20241021
